FAERS Safety Report 7294069-7 (Version None)
Quarter: 2011Q1

REPORT INFORMATION
  Report Type: 
  Country: None (occurrence: None)
  Receive Date: 20110203
  Receipt Date: 20110118
  Transmission Date: 20110831
  Serious: Yes (Hospitalization, Other)
  Sender: FDA-Public Use
  Company Number: 2009003957

PATIENT
  Age: 54 Year
  Sex: Female

DRUGS (19)
  1. SORAFENIB [Suspect]
     Indication: HEPATIC NEOPLASM MALIGNANT
     Dosage: (800 MG, QD), ORAL; (400 MG, QD), ORAL
     Route: 048
     Dates: start: 20091203, end: 20091220
  2. SORAFENIB [Suspect]
     Indication: HEPATIC NEOPLASM MALIGNANT
     Dosage: (800 MG, QD), ORAL; (400 MG, QD), ORAL
     Route: 048
     Dates: start: 20091228, end: 20100112
  3. SORAFENIB [Suspect]
  4. SPIRONOLACTONE [Concomitant]
  5. CLORANXEN [Concomitant]
  6. HYDROCORTISONE ACETATE (HYDROCORTISONE ACETATE) [Concomitant]
  7. ZALDIAR [Concomitant]
  8. POLTRAM (TRAMADOL HYDROCHLORIDE) [Concomitant]
  9. RELANIUM (DIAZEPAM) [Concomitant]
  10. KALIPOZ-PROLONGATUM (POTASSIUM CHLORIDE) [Concomitant]
  11. LORATADINE [Concomitant]
  12. MORPHINE SULFATE INJ [Concomitant]
  13. ERLOTINIB/PLACEBO(ERLOTINIB) (TABLET) (ERLOTINIB) [Suspect]
     Indication: HEPATIC NEOPLASM MALIGNANT
     Dosage: (100 MG, QD), ORAL; (50 MG, QD), ORAL
     Route: 048
     Dates: start: 20091228, end: 20100112
  14. ERLOTINIB/PLACEBO(ERLOTINIB) (TABLET) (ERLOTINIB) [Suspect]
     Indication: HEPATIC NEOPLASM MALIGNANT
     Dosage: (100 MG, QD), ORAL; (50 MG, QD), ORAL
     Route: 048
     Dates: start: 20091203, end: 20091220
  15. KALDYUM (POTASSIUM CHLORIDE) [Concomitant]
  16. ERLOTINIB/PLACEBO (ERLOTINIB) (TABLET) (ERLOTINIB) [Suspect]
  17. MIGPRIV (MIGPRIV) [Concomitant]
  18. ELOCON [Concomitant]
  19. HYDROXYZINUM (HYDROXYZINE HYDROCHLORIDE) [Concomitant]

REACTIONS (3)
  - HEADACHE [None]
  - VOMITING [None]
  - HYPERTENSION [None]
